FAERS Safety Report 20162441 (Version 2)
Quarter: 2022Q1

REPORT INFORMATION
  Report Type: Report from Study
  Country: US (occurrence: US)
  Receive Date: 20211208
  Receipt Date: 20220218
  Transmission Date: 20220423
  Serious: Yes (Life-Threatening, Hospitalization, Other)
  Sender: FDA-Public Use
  Company Number: US-GILEAD-2021-0529885

PATIENT
  Age: 24 Year
  Sex: Female
  Weight: 98.4 kg

DRUGS (7)
  1. REMDESIVIR [Suspect]
     Active Substance: REMDESIVIR
     Indication: COVID-19
     Dosage: 200 MG
     Route: 042
     Dates: start: 20210406
  2. REMDESIVIR [Suspect]
     Active Substance: REMDESIVIR
     Dosage: 100 MG, QD
     Route: 042
     Dates: end: 20210410
  3. MAGNESIUM [Concomitant]
     Active Substance: MAGNESIUM
  4. LABETALOL [Concomitant]
     Active Substance: LABETALOL\LABETALOL HYDROCHLORIDE
  5. DECADRON [Concomitant]
     Active Substance: DEXAMETHASONE
  6. CEFTRIAXONE [Concomitant]
     Active Substance: CEFTRIAXONE
  7. AZITHROMYCIN [Concomitant]
     Active Substance: AZITHROMYCIN

REACTIONS (2)
  - Pre-eclampsia [Recovered/Resolved]
  - Maternal exposure during pregnancy [Recovered/Resolved]

NARRATIVE: CASE EVENT DATE: 20210413
